FAERS Safety Report 4300308-4 (Version None)
Quarter: 2004Q1

REPORT INFORMATION
  Report Type: 
  Country: None (occurrence: None)
  Receive Date: 20040218
  Receipt Date: 20040202
  Transmission Date: 20041129
  Serious: Yes (Death)
  Sender: FDA-Public Use
  Company Number: US_0402100426

PATIENT
  Sex: Female

DRUGS (3)
  1. ZYPREXA [Suspect]
  2. BENZTROPINE MESYLATE [Concomitant]
  3. PAROXETINE HCL [Concomitant]

REACTIONS (1)
  - MULTIPLE DRUG OVERDOSE [None]
